FAERS Safety Report 18385559 (Version 1)
Quarter: 2020Q4

REPORT INFORMATION
  Report Type: Spontaneous
  Country: ES (occurrence: ES)
  Receive Date: 20201015
  Receipt Date: 20201015
  Transmission Date: 20210114
  Serious: Yes (Life-Threatening, Hospitalization)
  Sender: FDA-Public Use
  Company Number: ES-JNJFOC-20201007893

PATIENT
  Age: 70 Year
  Sex: Male

DRUGS (6)
  1. IBUPROFEN. [Suspect]
     Active Substance: IBUPROFEN
     Indication: PAIN
     Route: 048
     Dates: start: 201910, end: 20191125
  2. FAMOTIDINA [Concomitant]
     Indication: GASTRIC ULCER
     Route: 048
     Dates: start: 20191125
  3. ACETYLSALICYLIC ACID [Suspect]
     Active Substance: ASPIRIN
     Indication: VASCULAR DISORDER PROPHYLAXIS
     Dosage: DRUG START PERIOD: 1128 (DAYS)
     Route: 048
     Dates: start: 20161023, end: 20191125
  4. CANDESARTAN+HYDROCHLOROTHIAZIDE [Concomitant]
     Active Substance: CANDESARTAN CILEXETIL\HYDROCHLOROTHIAZIDE
     Indication: HYPERTENSION
     Route: 048
     Dates: start: 20191125
  5. ENZALUTAMIDE [Suspect]
     Active Substance: ENZALUTAMIDE
     Indication: PROSTATE CANCER METASTATIC
     Dosage: DRUG START PERIOD: 6 (DAYS)
     Route: 048
     Dates: start: 20191119, end: 20191125
  6. PARACETAMOL [Concomitant]
     Active Substance: ACETAMINOPHEN
     Indication: PAIN
     Dosage: AS REQUIRED?DRUG START PERIOD: 594 (DAYS)
     Route: 048
     Dates: start: 20180410

REACTIONS (2)
  - Upper gastrointestinal haemorrhage [Recovered/Resolved]
  - Thrombocytopenia [Recovered/Resolved]

NARRATIVE: CASE EVENT DATE: 20191124
